FAERS Safety Report 4268865-4 (Version None)
Quarter: 2004Q1

REPORT INFORMATION
  Report Type: 
  Country: None (occurrence: None)
  Receive Date: 20040109
  Receipt Date: 20031230
  Transmission Date: 20041129
  Serious: Yes (Hospitalization, Disabling)
  Sender: FDA-Public Use
  Company Number: HQ4914229OCT2002

PATIENT
  Age: 44 Year
  Sex: Female

DRUGS (9)
  1. DIMETAPP [Suspect]
     Dosage: ORAL
     Route: 048
     Dates: start: 19970331, end: 19970404
  2. ANTIDEPRESSANT (ANTIDEPRESSANT) [Concomitant]
  3. DIURETIC (DIURETIC) [Concomitant]
  4. HORMONE REPLACEMENT THEARPY AGENT (HORMONE REPLACEMENT THERAPY AGENT) [Concomitant]
  5. ATENOLOL [Concomitant]
  6. MONOPRIL [Concomitant]
  7. DAYQUIL (DEXTROMETHORPHAN HYDROBROMIDE/GUAIFENESIN/PARACETAMOL/PSEUDOE [Concomitant]
  8. SUDAFED SINUS (PARACETAMOL/PSEUDOEPHEDRINE HYDROCHLORIDE) [Concomitant]
  9. CATAPRES [Concomitant]

REACTIONS (2)
  - ISCHAEMIC STROKE [None]
  - MYOCARDIAL INFARCTION [None]
